FAERS Safety Report 16204147 (Version 1)
Quarter: 2019Q2

REPORT INFORMATION
  Report Type: Spontaneous
  Country: RO (occurrence: RO)
  Receive Date: 20190416
  Receipt Date: 20190416
  Transmission Date: 20190711
  Serious: Yes (Other)
  Sender: FDA-Public Use
  Company Number: RO-BAUSCH-BL-2019-010802

PATIENT
  Age: 26 Year
  Sex: Male
  Weight: 64 kg

DRUGS (4)
  1. DOXYCYCLINE. [Suspect]
     Active Substance: DOXYCYCLINE
     Indication: EPIDIDYMITIS
  2. TAVANIC [Suspect]
     Active Substance: LEVOFLOXACIN
     Indication: EPIDIDYMITIS
  3. DOXYCYCLINE. [Suspect]
     Active Substance: DOXYCYCLINE
     Indication: ORCHITIS
     Dosage: 2 DF,QD
     Route: 065
  4. TAVANIC [Suspect]
     Active Substance: LEVOFLOXACIN
     Indication: ORCHITIS
     Dosage: 500 MG, QD
     Route: 065

REACTIONS (2)
  - Drug ineffective [Unknown]
  - Disease recurrence [Unknown]
